FAERS Safety Report 9361911 (Version 4)
Quarter: 2013Q3

REPORT INFORMATION
  Report Type: Report from Study
  Country: AR (occurrence: AR)
  Receive Date: 20130621
  Receipt Date: 20130823
  Transmission Date: 20140515
  Serious: Yes (Other)
  Sender: FDA-Public Use
  Company Number: AR-GLAXOSMITHKLINE-Z0020104A

PATIENT
  Age: 75 Year
  Sex: Male
  Weight: 73.5 kg

DRUGS (6)
  1. TRAMETINIB [Suspect]
     Indication: MALIGNANT MELANOMA
     Dosage: 2MG PER DAY
     Route: 048
     Dates: start: 20130516
  2. DABRAFENIB [Suspect]
     Indication: MALIGNANT MELANOMA
     Dosage: 150MG TWICE PER DAY
     Route: 048
     Dates: start: 20130516
  3. CIPROFLOXACIN [Concomitant]
     Indication: FEBRILE NEUTROPENIA
     Dosage: 750MG TWICE PER DAY
     Route: 048
     Dates: start: 20130619, end: 20130624
  4. AMOXICILLIN [Concomitant]
     Indication: FEBRILE NEUTROPENIA
     Dosage: 500MG THREE TIMES PER DAY
     Route: 048
     Dates: start: 20130619, end: 20130624
  5. FILGRASTIM [Concomitant]
     Indication: FEBRILE NEUTROPENIA
     Dosage: 30IU6 PER DAY
     Route: 058
     Dates: start: 20130619, end: 20130619
  6. FILGASTRIM [Concomitant]
     Indication: FEBRILE NEUTROPENIA
     Dosage: 30IU6 PER DAY
     Route: 058
     Dates: start: 20130620, end: 20130620

REACTIONS (2)
  - Pyrexia [Recovered/Resolved]
  - Chills [Recovered/Resolved]
